FAERS Safety Report 15287228 (Version 5)
Quarter: 2019Q1

REPORT INFORMATION
  Report Type: Spontaneous
  Country: DE (occurrence: DE)
  Receive Date: 20180817
  Receipt Date: 20190321
  Transmission Date: 20190417
  Serious: Yes (Death, Life-Threatening, Hospitalization, Other)
  Sender: FDA-Public Use
  Company Number: DE-DRREDDYS-GER/GER/10/0013989

PATIENT
  Age: 68 Year
  Sex: Female
  Weight: 53 kg

DRUGS (32)
  1. CLOZAPINE. [Suspect]
     Active Substance: CLOZAPINE
     Dosage: 225 MG, QD
     Route: 048
  2. LACTULOSE. [Concomitant]
     Active Substance: LACTULOSE
     Indication: PRODUCT USED FOR UNKNOWN INDICATION
     Dosage: 20 ML, QD
  3. TRAMAL [Concomitant]
     Active Substance: TRAMADOL
     Indication: PRODUCT USED FOR UNKNOWN INDICATION
     Route: 042
  4. ERGENYL [Concomitant]
     Active Substance: VALPROIC ACID
     Indication: PRODUCT USED FOR UNKNOWN INDICATION
     Dosage: 600 MG, QD
  5. VALPROIC ACID. [Suspect]
     Active Substance: VALPROIC ACID
     Dosage: 600 MG, QD
     Route: 048
  6. LEVODOPA W/CARBIDOPA [Suspect]
     Active Substance: CARBIDOPA\LEVODOPA
     Indication: PRODUCT USED FOR UNKNOWN INDICATION
     Dosage: 200 MG, QD
     Route: 048
  7. STALEVO [Suspect]
     Active Substance: CARBIDOPA\ENTACAPONE\LEVODOPA
     Indication: PRODUCT USED FOR UNKNOWN INDICATION
     Dosage: 6X100MG
     Route: 048
  8. STALEVO [Suspect]
     Active Substance: CARBIDOPA\ENTACAPONE\LEVODOPA
     Dosage: 600 MG, QD
     Route: 048
  9. STALEVO [Suspect]
     Active Substance: CARBIDOPA\ENTACAPONE\LEVODOPA
     Dosage: 50 MG, TID
  10. EXELON [Suspect]
     Active Substance: RIVASTIGMINE TARTRATE
     Indication: PRODUCT USED FOR UNKNOWN INDICATION
     Dosage: 6 MG, QD (3 MG, BID)
     Route: 065
  11. RIVASTIGMINE. [Suspect]
     Active Substance: RIVASTIGMINE
     Indication: PARKINSON^S DISEASE
     Dosage: 6 MG, QD (3 MG, BID)
     Route: 048
  12. CLOZAPINE. [Suspect]
     Active Substance: CLOZAPINE
     Indication: PRODUCT USED FOR UNKNOWN INDICATION
     Dosage: 0.5 DF, Q3W (25MG (0.5 TABLET AT 7+9+12+14+19 O^CLOCK)
     Route: 048
  13. KALIUM [Concomitant]
     Active Substance: POTASSIUM CHLORIDE
     Indication: PRODUCT USED FOR UNKNOWN INDICATION
     Route: 065
  14. NOVAMINSULFON [Concomitant]
     Active Substance: METAMIZOLE
     Indication: PRODUCT USED FOR UNKNOWN INDICATION
     Dosage: 20 DROPS, QID (4/DAY)
  15. OMEPRAZOLE. [Suspect]
     Active Substance: OMEPRAZOLE
     Indication: PRODUCT USED FOR UNKNOWN INDICATION
     Dosage: 80 MG, QD ALSO REPORTED AS 40 MG, BID
     Route: 065
  16. RIVASTIGMINE. [Suspect]
     Active Substance: RIVASTIGMINE
     Dosage: 1 MG, QD 3-1.5-1.5
     Route: 048
  17. STALEVO [Suspect]
     Active Substance: CARBIDOPA\ENTACAPONE\LEVODOPA
     Dosage: 6 DF, QD
     Route: 048
  18. CARBIDOPA. [Suspect]
     Active Substance: CARBIDOPA
     Indication: PRODUCT USED FOR UNKNOWN INDICATION
     Dosage: 200 MG, QHS, DAILY DOSE: 200 MG MILLIGRAM(S) EVERY DAY
     Route: 048
  19. NOVALGIN (METAMIZOLE SODIUM) [Suspect]
     Active Substance: METAMIZOLE SODIUM
     Indication: PRODUCT USED FOR UNKNOWN INDICATION
     Route: 042
  20. NEOSTIGMINE METHYLSULFATE. [Concomitant]
     Active Substance: NEOSTIGMINE METHYLSULFATE
     Indication: PRODUCT USED FOR UNKNOWN INDICATION
  21. VALPROIC ACID. [Suspect]
     Active Substance: VALPROIC ACID
     Indication: PRODUCT USED FOR UNKNOWN INDICATION
     Dosage: 300 MG, BID
     Route: 048
  22. STALEVO [Suspect]
     Active Substance: CARBIDOPA\ENTACAPONE\LEVODOPA
     Route: 048
     Dates: start: 20090111
  23. L DOPA [Suspect]
     Active Substance: LEVODOPA
     Indication: PREMEDICATION
     Dosage: 93.75 MG, QD (1/DAY)
     Route: 048
  24. PIPAMPERON [Suspect]
     Active Substance: PIPAMPERONE HYDROCHLORIDE
     Indication: PRODUCT USED FOR UNKNOWN INDICATION
     Dosage: 40 MG, QD
     Route: 065
  25. NACOM [Concomitant]
     Active Substance: CARBIDOPA\LEVODOPA
     Indication: PRODUCT USED FOR UNKNOWN INDICATION
     Dosage: 250 MG, QD
  26. CLOZAPINE. [Suspect]
     Active Substance: CLOZAPINE
     Dosage: 62.5 MG, QD
     Route: 048
  27. DOMPERIDONE [Suspect]
     Active Substance: DOMPERIDONE
     Indication: PRODUCT USED FOR UNKNOWN INDICATION
     Dosage: 10 MG, BID
     Route: 048
     Dates: end: 200901
  28. MOVICOL [Concomitant]
     Active Substance: POLYETHYLENE GLYCOL 3350\POTASSIUM CHLORIDE\SODIUM BICARBONATE\SODIUM CHLORIDE
     Indication: PRODUCT USED FOR UNKNOWN INDICATION
     Dosage: 1 DF, QD
  29. RIVASTIGMINE. [Suspect]
     Active Substance: RIVASTIGMINE
     Dosage: 6 MG, QD
     Route: 062
  30. DISTRANEURIN [Suspect]
     Active Substance: CLOMETHIAZOLE
     Indication: PRODUCT USED FOR UNKNOWN INDICATION
     Dosage: UNK UNK, QD (AS NECESSARY)
     Route: 048
     Dates: start: 2009
  31. METOCLOPRAMID [Concomitant]
     Active Substance: METOCLOPRAMIDE
     Indication: PRODUCT USED FOR UNKNOWN INDICATION
     Route: 042
  32. ISICOM [Concomitant]
     Active Substance: CARBIDOPA\LEVODOPA
     Indication: PRODUCT USED FOR UNKNOWN INDICATION
     Dosage: 25 MG, TID (3/DAY)

REACTIONS (13)
  - Dementia [Unknown]
  - Abdominal pain [Unknown]
  - Nausea [Unknown]
  - Ileus [Fatal]
  - White blood cell count increased [Unknown]
  - Gastrointestinal sounds abnormal [Unknown]
  - Abdominal tenderness [Unknown]
  - Abdominal distension [Unknown]
  - Faecaloma [Fatal]
  - Bladder disorder [Unknown]
  - Vascular encephalopathy [Unknown]
  - Subileus [Fatal]
  - Pancreatitis [Fatal]

NARRATIVE: CASE EVENT DATE: 2009
